FAERS Safety Report 20454209 (Version 6)
Quarter: 2022Q2

REPORT INFORMATION
  Report Type: Spontaneous
  Country: CA (occurrence: CA)
  Receive Date: 20220210
  Receipt Date: 20220625
  Transmission Date: 20220720
  Serious: Yes (Other)
  Sender: FDA-Public Use
  Company Number: CA-CELLTRION INC.-2021CA018390

PATIENT

DRUGS (13)
  1. INFLECTRA [Suspect]
     Active Substance: INFLIXIMAB-DYYB
     Indication: Colitis ulcerative
     Dosage: 5 MG/KG AT 0,2,6 WEEKS, THEN EVERY 8 WEEKS
     Route: 042
     Dates: start: 20211117, end: 20211117
  2. INFLECTRA [Suspect]
     Active Substance: INFLIXIMAB-DYYB
     Dosage: 5 MG/KG AT 0,2,6 WEEKS, THEN EVERY 8 WEEKS
     Route: 042
     Dates: start: 20211117, end: 20211202
  3. INFLECTRA [Suspect]
     Active Substance: INFLIXIMAB-DYYB
     Dosage: 5 MG/KG AT 0,2,6 WEEKS, THEN EVERY 8 WEEKS
     Route: 042
     Dates: start: 20211202, end: 20211202
  4. INFLECTRA [Suspect]
     Active Substance: INFLIXIMAB-DYYB
     Dosage: UNK
     Dates: start: 20211231
  5. INFLECTRA [Suspect]
     Active Substance: INFLIXIMAB-DYYB
     Dosage: 500 MG, RELOADING DOSE: AT WEEK 0, 2 AND 6, THEN Q 8 WEEKS
     Route: 042
     Dates: start: 20220308
  6. INFLECTRA [Suspect]
     Active Substance: INFLIXIMAB-DYYB
     Dosage: 500 MG, THEN AT WEEK 0, 2 AND 6, THEN Q 8 WEEKS
     Route: 042
     Dates: start: 20220322
  7. INFLECTRA [Suspect]
     Active Substance: INFLIXIMAB-DYYB
     Dosage: 500 MG, THEN AT WEEK 0, 2 AND 6, THEN Q 8 WEEKS
     Route: 042
     Dates: start: 20220421
  8. INFLECTRA [Suspect]
     Active Substance: INFLIXIMAB-DYYB
     Dosage: 500 MG, THEN AT WEEK 0, 2 AND 6, THEN Q 8 WEEKS
     Route: 042
     Dates: start: 20220614
  9. MESALAMINE [Concomitant]
     Active Substance: MESALAMINE
     Dosage: UNK
  10. AZITHROMYCIN [Concomitant]
     Active Substance: AZITHROMYCIN
     Dosage: UNK
  11. HYDROCORTISONE [Concomitant]
     Active Substance: HYDROCORTISONE
     Dosage: UNK
  12. MESALAMINE [Concomitant]
     Active Substance: MESALAMINE
     Dosage: UNK
  13. PREDNISONE [Concomitant]
     Active Substance: PREDNISONE
     Dosage: PREDNISONE TAPER 15MG WAS STARTED ON 02MAY2022
     Dates: start: 20220502

REACTIONS (23)
  - Colitis ulcerative [Not Recovered/Not Resolved]
  - Incorrect dose administered [Unknown]
  - Infusion site swelling [Recovering/Resolving]
  - Infusion site erythema [Recovering/Resolving]
  - Pain [Recovered/Resolved]
  - Sinusitis [Unknown]
  - Sinus disorder [Not Recovered/Not Resolved]
  - Swelling [Not Recovered/Not Resolved]
  - Oropharyngeal pain [Not Recovered/Not Resolved]
  - Headache [Not Recovered/Not Resolved]
  - Condition aggravated [Not Recovered/Not Resolved]
  - Swelling face [Unknown]
  - Throat lesion [Not Recovered/Not Resolved]
  - Injection site discolouration [Unknown]
  - Tenderness [Unknown]
  - Ear pain [Not Recovered/Not Resolved]
  - Gastrointestinal disorder [Unknown]
  - Viral parotitis [Unknown]
  - Salivary gland disorder [Not Recovered/Not Resolved]
  - Pharyngitis [Not Recovered/Not Resolved]
  - Weight fluctuation [Unknown]
  - Arthralgia [Not Recovered/Not Resolved]
  - Eye disorder [Not Recovered/Not Resolved]

NARRATIVE: CASE EVENT DATE: 20211101
